FAERS Safety Report 4523756-6 (Version None)
Quarter: 2004Q4

REPORT INFORMATION
  Report Type: 
  Country: None (occurrence: None)
  Receive Date: 20041210
  Receipt Date: 20041025
  Transmission Date: 20050328
  Serious: Yes (Hospitalization)
  Sender: FDA-Public Use
  Company Number: PHBS2004ES14238

PATIENT
  Age: 50 Year
  Sex: Male

DRUGS (5)
  1. LUDIOMIL [Suspect]
     Indication: DEPRESSION
     Dosage: 150 MG/D
     Route: 065
  2. VENLAFAXINE HCL [Suspect]
     Dosage: 300 MG/D
     Route: 065
  3. REBOXETINE [Suspect]
     Dosage: 8 MG/D
     Route: 065
  4. VITAMIN B COMPLEX CAP [Concomitant]
     Route: 065
  5. S-ADENOSYL-L-METHIONINE [Concomitant]
     Route: 030

REACTIONS (17)
  - BLOOD CREATINE PHOSPHOKINASE INCREASED [None]
  - BLOOD PRESSURE DIASTOLIC INCREASED [None]
  - BODY TEMPERATURE INCREASED [None]
  - CARDIAC DISORDER [None]
  - CONFUSIONAL STATE [None]
  - DRUG INTERACTION [None]
  - HYPERHIDROSIS [None]
  - HYPERREFLEXIA [None]
  - LEUKOCYTOSIS [None]
  - MUSCLE RIGIDITY [None]
  - MUTISM [None]
  - NEGATIVISM [None]
  - NEUTROPHILIA [None]
  - PSYCHOMOTOR AGITATION [None]
  - RESPIRATORY DISORDER [None]
  - SEROTONIN SYNDROME [None]
  - TREMOR [None]
